FAERS Safety Report 8582433 (Version 5)
Quarter: 2012Q4

REPORT INFORMATION
  Report Type: 
  Country: CO (occurrence: CO)
  Receive Date: 20120529
  Receipt Date: 20120920
  Transmission Date: 20130627
  Serious: Yes (Disabling, Other)
  Sender: FDA-Public Use
  Company Number: PHHY2012CO042519

PATIENT
  Age: 58 None
  Sex: Male

DRUGS (3)
  1. STALEVO [Suspect]
     Indication: PARKINSON^S DISEASE
     Dosage: 5 DF, per day
     Route: 048
     Dates: start: 2005
  2. MIRAPEX [Concomitant]
     Dosage: Three times daily
  3. TRAZODONE [Concomitant]
     Dosage: UNK UKN, UNK

REACTIONS (8)
  - Musculoskeletal stiffness [Not Recovered/Not Resolved]
  - Parkinsonism [Unknown]
  - Hypokinesia [Recovered/Resolved]
  - Dysstasia [Recovered/Resolved]
  - Gait disturbance [Not Recovered/Not Resolved]
  - Dyskinesia [Not Recovered/Not Resolved]
  - Drug ineffective [Unknown]
  - Product quality issue [None]
